FAERS Safety Report 8454034 (Version 4)
Quarter: 2012Q4

REPORT INFORMATION
  Report Type: Report from Study
  Country: JP (occurrence: JP)
  Receive Date: 20120312
  Receipt Date: 20120914
  Transmission Date: 20130627
  Serious: Yes (Hospitalization)
  Sender: FDA-Public Use
  Company Number: JP-BRISTOL-MYERS SQUIBB COMPANY-16431876

PATIENT
  Age: 78 Year
  Sex: Female
  Weight: 49 kg

DRUGS (7)
  1. ORENCIA [Suspect]
     Indication: RHEUMATOID ARTHRITIS
     Dosage: Date of admisini:27Jan11,10Feb11:48kg,23Feb11:46.6kg,23mar11,04Apr11:44kg,04May11:45kg,06Jun11:44kg
     Route: 042
     Dates: start: 20110127
  2. METHOTREXATE [Suspect]
     Indication: RHEUMATOID ARTHRITIS
     Dates: end: 20110909
  3. TOCILIZUMAB [Concomitant]
     Indication: RHEUMATOID ARTHRITIS
     Dates: start: 20091005, end: 20110124
  4. PROGRAF [Concomitant]
     Indication: RHEUMATOID ARTHRITIS
  5. SALAZOSULFAPYRIDINE [Concomitant]
     Indication: RHEUMATOID ARTHRITIS
  6. PREDONINE [Concomitant]
     Indication: RHEUMATOID ARTHRITIS
     Route: 048
  7. LOXOPROFEN [Concomitant]
     Indication: RHEUMATOID ARTHRITIS

REACTIONS (2)
  - Diverticulitis [Recovered/Resolved]
  - Duodenal stenosis [Recovered/Resolved]
